FAERS Safety Report 7894203-1 (Version None)
Quarter: 2011Q4

REPORT INFORMATION
  Report Type: 
  Country: None (occurrence: None)
  Receive Date: 20111104
  Receipt Date: 20111020
  Transmission Date: 20120403
  Serious: Yes (Other)
  Sender: FDA-Public Use
  Company Number: PHHY2011JP48969

PATIENT
  Sex: Male

DRUGS (9)
  1. PREDNISOLONE [Suspect]
     Indication: RENAL TRANSPLANT
     Dosage: UNK UKN, UNK
     Route: 048
     Dates: start: 20090624
  2. PREDNISOLONE [Concomitant]
     Indication: RENAL TRANSPLANT
     Dosage: 50 MG, UNK
     Route: 042
     Dates: start: 20090623
  3. BREDININ [Suspect]
     Indication: RENAL TRANSPLANT
     Route: 048
     Dates: start: 20090624
  4. SANDIMMUNE [Concomitant]
     Indication: RENAL TRANSPLANT
     Dosage: 240 MG, UNK
     Route: 042
     Dates: start: 20090623, end: 20090623
  5. NEORAL [Suspect]
     Indication: RENAL TRANSPLANT
     Dosage: 500 MG, UNK
     Route: 048
  6. SIMULECT [Suspect]
     Indication: RENAL TRANSPLANT
     Dosage: 20 MG, UNK
     Route: 042
     Dates: start: 20090623, end: 20090623
  7. SIMULECT [Suspect]
     Dosage: 20 MG, UNK
     Route: 042
     Dates: start: 20090627, end: 20090627
  8. PROGRAF [Concomitant]
     Indication: RENAL TRANSPLANT
     Route: 048
     Dates: start: 20090723
  9. NEORAL [Suspect]
     Route: 048
     Dates: start: 20090624, end: 20090722

REACTIONS (8)
  - NEPHROPATHY TOXIC [None]
  - TOXICITY TO VARIOUS AGENTS [None]
  - BLOOD CREATININE INCREASED [None]
  - RENAL TUBULAR NECROSIS [None]
  - BLOOD UREA INCREASED [None]
  - THROMBOSIS [None]
  - URINE OUTPUT DECREASED [None]
  - VASCULITIS [None]
